FAERS Safety Report 19237769 (Version 1)
Quarter: 2021Q2

REPORT INFORMATION
  Report Type: Spontaneous
  Country: US (occurrence: US)
  Receive Date: 20210510
  Receipt Date: 20210510
  Transmission Date: 20210717
  Serious: No
  Sender: FDA-Public Use
  Company Number: US-BAYER-2021-134924

PATIENT
  Age: 100 Year
  Sex: Male

DRUGS (2)
  1. CLARITIN LIQUI?GELS [Suspect]
     Active Substance: LORATADINE
     Indication: HYPERSENSITIVITY
     Dosage: 1 DF, QD
     Route: 048
     Dates: start: 20210429, end: 20210430
  2. CLARITIN LIQUI?GELS [Suspect]
     Active Substance: LORATADINE
     Indication: NASOPHARYNGITIS

REACTIONS (5)
  - Oral pain [Unknown]
  - Dry mouth [Unknown]
  - Nasal dryness [Unknown]
  - Drug ineffective [Unknown]
  - Rhinalgia [Unknown]

NARRATIVE: CASE EVENT DATE: 202104
